FAERS Safety Report 8483717-1 (Version None)
Quarter: 2012Q3

REPORT INFORMATION
  Report Type: 
  Country: None (occurrence: None)
  Receive Date: 20120703
  Receipt Date: 20120625
  Transmission Date: 20120928
  Serious: Yes (Hospitalization)
  Sender: FDA-Public Use
  Company Number: US-BIOGENIDEC-2012BI020569

PATIENT
  Age: 52 Year
  Sex: Female

DRUGS (8)
  1. ZOLOFT [Concomitant]
  2. PREDNISONE TAB [Concomitant]
  3. PEPCID [Concomitant]
  4. NAPROXEN [Concomitant]
  5. BACLOFEN [Concomitant]
  6. TYSABRI [Suspect]
     Indication: MULTIPLE SCLEROSIS
     Route: 042
     Dates: start: 20111230, end: 20120227
  7. BUMEX [Concomitant]
  8. MECLIZINE [Concomitant]

REACTIONS (5)
  - ABDOMINAL SEPSIS [None]
  - NECROTISING COLITIS [None]
  - ENTEROCOCCAL INFECTION [None]
  - POSTOPERATIVE ABSCESS [None]
  - ABSCESS FUNGAL [None]
